FAERS Safety Report 21410827 (Version 1)
Quarter: 2022Q4

REPORT INFORMATION
  Report Type: Spontaneous
  Country: US (occurrence: US)
  Receive Date: 20221005
  Receipt Date: 20221005
  Transmission Date: 20230113
  Serious: No
  Sender: FDA-Public Use
  Company Number: US-ELI_LILLY_AND_COMPANY-US202209011250

PATIENT
  Sex: Male

DRUGS (3)
  1. TRULICITY [Suspect]
     Active Substance: DULAGLUTIDE
     Indication: Type 2 diabetes mellitus
     Dosage: 1.5 MG, WEEKLY (1/W)
     Route: 058
     Dates: start: 2020
  2. TRULICITY [Suspect]
     Active Substance: DULAGLUTIDE
     Indication: Type 2 diabetes mellitus
     Dosage: 3 MG, WEEKLY (1/W)
     Route: 058
  3. METFORMIN [Concomitant]
     Active Substance: METFORMIN HYDROCHLORIDE
     Indication: Product used for unknown indication

REACTIONS (4)
  - Glycosylated haemoglobin increased [Not Recovered/Not Resolved]
  - Mass [Not Recovered/Not Resolved]
  - Rash pruritic [Not Recovered/Not Resolved]
  - Drug ineffective [Not Recovered/Not Resolved]
